FAERS Safety Report 6877771-8 (Version None)
Quarter: 2010Q3

REPORT INFORMATION
  Report Type: 
  Country: None (occurrence: None)
  Receive Date: 20100727
  Receipt Date: 20100626
  Transmission Date: 20110219
  Serious: No
  Sender: FDA-Public Use
  Company Number: US-ABBOTT-10P-163-0654907-00

PATIENT
  Sex: Female
  Weight: 52.21 kg

DRUGS (1)
  1. SYNTHROID [Suspect]
     Indication: THYROID CANCER
     Dates: start: 19900101

REACTIONS (3)
  - EXPIRED DRUG ADMINISTERED [None]
  - IRRITABILITY [None]
  - WEIGHT INCREASED [None]
